FAERS Safety Report 6462588-9 (Version None)
Quarter: 2009Q4

REPORT INFORMATION
  Report Type: 
  Country: None (occurrence: None)
  Receive Date: 20091130
  Receipt Date: 20091118
  Transmission Date: 20100525
  Serious: Yes (Death, Life-Threatening)
  Sender: FDA-Public Use
  Company Number: JP-PFIZER INC-2008097290

PATIENT
  Age: 47 Year
  Sex: Male

DRUGS (1)
  1. SUNITINIB MALATE [Suspect]
     Indication: GASTROINTESTINAL STROMAL TUMOUR
     Dosage: TDD 50 MG
     Route: 048
     Dates: start: 20080707

REACTIONS (2)
  - DEATH [None]
  - TUMOUR HAEMORRHAGE [None]
